FAERS Safety Report 5163898-8 (Version None)
Quarter: 2006Q4

REPORT INFORMATION
  Report Type: 
  Country: None (occurrence: None)
  Receive Date: 20061124
  Receipt Date: 20061109
  Transmission Date: 20070319
  Serious: Yes (Death)
  Sender: FDA-Public Use
  Company Number: 2006139041

PATIENT
  Age: 62 Year

DRUGS (1)
  1. VERAPAMIL HYDROCHLORIDE [Suspect]
     Dosage: ORAL
     Route: 048

REACTIONS (5)
  - DRUG INTERACTION [None]
  - INCORRECT DOSE ADMINISTERED [None]
  - INCORRECT ROUTE OF DRUG ADMINISTRATION [None]
  - MEDICATION ERROR [None]
  - WRONG DRUG ADMINISTERED [None]
